FAERS Safety Report 4531985-0 (Version None)
Quarter: 2004Q4

REPORT INFORMATION
  Report Type: 
  Country: None (occurrence: None)
  Receive Date: 20041217
  Receipt Date: 20041214
  Transmission Date: 20050328
  Serious: Yes (Other)
  Sender: FDA-Public Use
  Company Number: GBWYE261907DEC04

PATIENT
  Age: 28 Year
  Sex: Male

DRUGS (2)
  1. EFFEXOR XR [Suspect]
     Indication: DEPRESSION
     Dosage: 75 MG 2X PER 1 DAY; UNKNOWN
     Dates: start: 20041122, end: 20041206
  2. DICLOFENAC SODIUM [Concomitant]

REACTIONS (5)
  - HEPATIC PAIN [None]
  - RECTAL HAEMORRHAGE [None]
  - RENAL PAIN [None]
  - TREATMENT NONCOMPLIANCE [None]
  - VISUAL DISTURBANCE [None]
